FAERS Safety Report 7779939-5 (Version None)
Quarter: 2011Q3

REPORT INFORMATION
  Report Type: 
  Country: None (occurrence: None)
  Receive Date: 20110927
  Receipt Date: 20110926
  Transmission Date: 20111222
  Serious: Yes (Other)
  Sender: FDA-Public Use
  Company Number: ES-ABBOTT-11P-144-0857471-00

PATIENT
  Age: 38 Year
  Sex: Male

DRUGS (2)
  1. HUMIRA [Suspect]
     Indication: CROHN'S DISEASE
     Route: 058
     Dates: start: 20060101
  2. BUDESONIDE [Concomitant]
     Indication: CROHN'S DISEASE
     Route: 048
     Dates: start: 20080101, end: 20100101

REACTIONS (6)
  - ORTHOSTATIC HYPOTENSION [None]
  - RAYNAUD'S PHENOMENON [None]
  - HYPOREFLEXIA [None]
  - FATIGUE [None]
  - FEELING COLD [None]
  - AMNESIA [None]
